FAERS Safety Report 22021422 (Version 1)
Quarter: 2023Q1

REPORT INFORMATION
  Report Type: Spontaneous
  Country: US (occurrence: None)
  Receive Date: 20230218
  Receipt Date: 20230218
  Transmission Date: 20230418
  Serious: Yes (Hospitalization)
  Sender: FDA-Public Use
  Company Number: None

PATIENT
  Sex: Female

DRUGS (19)
  1. ENBREL [Suspect]
     Active Substance: ETANERCEPT
     Indication: Polyarthritis
     Route: 058
     Dates: start: 20221103
  2. ALENDRONATE [Concomitant]
     Active Substance: ALENDRONATE SODIUM
  3. ALPRAZOLAM [Concomitant]
     Active Substance: ALPRAZOLAM
  4. DESVENLAFAX [Concomitant]
  5. DICLOFENAC [Concomitant]
     Active Substance: DICLOFENAC
  6. ESTRADIOL [Concomitant]
     Active Substance: ESTRADIOL
  7. FENOFIBRIC CAP [Concomitant]
  8. FENTANYL [Concomitant]
     Active Substance: FENTANYL
  9. GABAPENTIN [Concomitant]
     Active Substance: GABAPENTIN
  10. LEVOTHYROXIN TAB [Concomitant]
  11. METOPROL SUC TAB [Concomitant]
  12. OLMESA MEDOX [Concomitant]
  13. OMEPRAZOLE SODIUM [Concomitant]
     Active Substance: OMEPRAZOLE SODIUM
  14. OXYCODONE [Concomitant]
     Active Substance: OXYCODONE
  15. PRENATVITE [Concomitant]
  16. ROPINIROLE TAB [Concomitant]
  17. TIZANIDINE CAP [Concomitant]
  18. VALACYCLOVIR TAB [Concomitant]
  19. VITAMIN B [Concomitant]
     Active Substance: VITAMIN B

REACTIONS (1)
  - Therapy interrupted [None]
